FAERS Safety Report 5908788-5 (Version None)
Quarter: 2008Q4

REPORT INFORMATION
  Report Type: 
  Country: None (occurrence: None)
  Receive Date: 20081006
  Receipt Date: 20080925
  Transmission Date: 20090506
  Serious: Yes (Hospitalization, Other)
  Sender: FDA-Public Use
  Company Number: PHHY2008BR22754

PATIENT
  Sex: Male
  Weight: 2.121 kg

DRUGS (3)
  1. VISKEN [Suspect]
     Indication: HYPERTENSION
     Dosage: 2 DF, Q8H
     Route: 064
  2. HYDROCHLOROTHIAZIDE [Concomitant]
     Indication: HYPERTENSION
     Dosage: 25 MG DAILY
     Route: 064
  3. METHYLDOPA [Concomitant]
     Indication: HYPERTENSION
     Dosage: 250 MG TWICE DAILY WITH AN INTERVAL OF 6 HOURS
     Route: 064

REACTIONS (3)
  - DRUG EXPOSURE DURING PREGNANCY [None]
  - PREMATURE BABY [None]
  - RESPIRATORY DISORDER NEONATAL [None]
